FAERS Safety Report 4880922-8 (Version None)
Quarter: 2005Q4

REPORT INFORMATION
  Report Type: 
  Country: None (occurrence: None)
  Receive Date: 20051223
  Receipt Date: 20051025
  Transmission Date: 20060501
  Serious: No
  Sender: FDA-Public Use
  Company Number: 05P-163-0315201-00

PATIENT
  Age: 79 Year
  Sex: Female
  Weight: 74.8435 kg

DRUGS (11)
  1. HUMIRA [Suspect]
     Indication: RHEUMATOID ARTHRITIS
     Dosage: 40 MG, 1 IN 2 WK, SUBCUTANEOUS
     Route: 058
     Dates: start: 20050501
  2. FOSINOPRIL SODIUM [Concomitant]
  3. ATENOLOL [Concomitant]
  4. AMITRIPTYLINE HCL [Concomitant]
  5. DARVOCET [Concomitant]
  6. OMEPRAZOLE [Concomitant]
  7. RISEDRONATE SODIUM [Concomitant]
  8. LIBRIUM [Concomitant]
  9. CALCIUM GLUCONATE [Concomitant]
  10. CYANOCOBALAMIN [Concomitant]
  11. SERTRALINE HYDROCHLORIDE [Concomitant]

REACTIONS (4)
  - CYSTITIS [None]
  - DRUG EFFECT DECREASED [None]
  - FALL [None]
  - SKIN LACERATION [None]
